FAERS Safety Report 16042627 (Version 1)
Quarter: 2019Q1

REPORT INFORMATION
  Report Type: Spontaneous
  Country: NO (occurrence: NO)
  Receive Date: 20190306
  Receipt Date: 20190306
  Transmission Date: 20190418
  Serious: Yes (Hospitalization, Congenital Anomaly)
  Sender: FDA-Public Use
  Company Number: NO-ASTRAZENECA-2019SE33247

PATIENT
  Age: 0 Day
  Sex: Male

DRUGS (5)
  1. SEROQUEL [Suspect]
     Active Substance: QUETIAPINE FUMARATE
     Indication: ANXIETY
     Route: 064
     Dates: start: 20181026
  2. CIPRALEX [Suspect]
     Active Substance: ESCITALOPRAM OXALATE
     Indication: ANXIETY
     Route: 064
     Dates: start: 20181021, end: 20181030
  3. MIRTAZAPINE. [Suspect]
     Active Substance: MIRTAZAPINE
     Indication: ANXIETY
     Dosage: 15 MG AT NIGHT IF NECESSARY.
     Route: 064
     Dates: start: 20181023, end: 20181024
  4. FURADANTIN [Suspect]
     Active Substance: NITROFURANTOIN
     Indication: URINARY TRACT INFECTION
     Route: 064
     Dates: start: 20180914, end: 20180921
  5. TRUXAL [Suspect]
     Active Substance: CHLORPROTHIXENE
     Indication: ANXIETY
     Dosage: 2 DOSAGE FORMS AT NIGHT. STRENGTH OF DOSAGE FORMS NOT KNOWN.
     Route: 064
     Dates: start: 20180523, end: 20180914

REACTIONS (2)
  - Duodenal stenosis [Unknown]
  - Foetal exposure during pregnancy [Unknown]

NARRATIVE: CASE EVENT DATE: 20181123
